FAERS Safety Report 4488896-9 (Version None)
Quarter: 2004Q3

REPORT INFORMATION
  Report Type: 
  Country: None (occurrence: None)
  Receive Date: 20040921
  Receipt Date: 20030721
  Transmission Date: 20050211
  Serious: Yes (Other)
  Sender: FDA-Public Use
  Company Number: 163-20785-03070563

PATIENT
  Age: 50 Year
  Sex: Male

DRUGS (2)
  1. THALOMID [Suspect]
     Indication: COLON CANCER METASTATIC
     Dosage: ORAL
     Route: 048
     Dates: start: 20030101, end: 20030101
  2. THALOMID [Suspect]
     Indication: METASTASES TO BONE
     Dosage: ORAL
     Route: 048
     Dates: start: 20030101, end: 20030101

REACTIONS (1)
  - DIPLOPIA [None]
